FAERS Safety Report 21450266 (Version 1)
Quarter: 2022Q4

REPORT INFORMATION
  Report Type: Report from Study
  Country: US (occurrence: US)
  Receive Date: 20221013
  Receipt Date: 20221013
  Transmission Date: 20230112
  Serious: No
  Sender: FDA-Public Use
  Company Number: US-ABBVIE-4153325

PATIENT
  Age: 53 Year
  Sex: Male

DRUGS (4)
  1. SKYRIZI [Suspect]
     Active Substance: RISANKIZUMAB-RZAA
     Indication: Palmoplantar pustulosis
     Route: 058
     Dates: start: 20210323
  2. HALOBETASOL PROPIONATE [Concomitant]
     Active Substance: HALOBETASOL PROPIONATE
     Indication: Condition aggravated
     Dosage: 0.05%
     Route: 061
     Dates: start: 20210325
  3. HYDROCHLOROTHIAZIDE\TRIAMTERENE [Concomitant]
     Active Substance: HYDROCHLOROTHIAZIDE\TRIAMTERENE
     Indication: Blood pressure management
     Dosage: 37.5/25MG
     Route: 048
     Dates: start: 20210325
  4. CALCIPOTRIENE [Concomitant]
     Active Substance: CALCIPOTRIENE
     Indication: Product used for unknown indication

REACTIONS (2)
  - Furuncle [Unknown]
  - Miliaria [Unknown]

NARRATIVE: CASE EVENT DATE: 20210323
